FAERS Safety Report 4817358-1 (Version None)
Quarter: 2005Q3

REPORT INFORMATION
  Report Type: 
  Country: None (occurrence: None)
  Receive Date: 20050929
  Receipt Date: 20050616
  Transmission Date: 20060218
  Serious: No
  Sender: FDA-Public Use
  Company Number: 04P-163-0284987-00

PATIENT
  Age: 79 Year
  Sex: Female
  Weight: 66.2252 kg

DRUGS (10)
  1. HUMIRA [Suspect]
     Indication: RHEUMATOID ARTHRITIS
     Dosage: 40 MG, 1 IN 2 WK, SUBCUTANEOUS
     Route: 058
     Dates: start: 20041101
  2. NABUMETONE [Concomitant]
  3. EVISTA [Concomitant]
  4. ASPIRIN [Concomitant]
  5. MULTI-VITAMINS [Concomitant]
  6. LEVOTHYROXINE SODIUM [Concomitant]
  7. FOLIC ACID [Concomitant]
  8. TOCOPHEROL CONCENTRATE CAP [Concomitant]
  9. CALCIUM GLUCONATE [Concomitant]
  10. PREDNISONE [Concomitant]

REACTIONS (6)
  - ACCIDENTAL OVERDOSE [None]
  - HOT FLUSH [None]
  - NERVE COMPRESSION [None]
  - NIGHT SWEATS [None]
  - RASH PRURITIC [None]
  - TINEA PEDIS [None]
